FAERS Safety Report 4264118-9 (Version None)
Quarter: 2004Q1

REPORT INFORMATION
  Report Type: 
  Country: None (occurrence: None)
  Receive Date: 20040106
  Receipt Date: 20040106
  Transmission Date: 20041129
  Serious: No
  Sender: FDA-Public Use
  Company Number: None

PATIENT
  Age: 71 Year
  Sex: Male

DRUGS (1)
  1. INDOMETHACIN [Suspect]
     Indication: GOUT
     Dosage: 50 MG TID
     Dates: start: 20030807, end: 20030809

REACTIONS (1)
  - SWELLING FACE [None]
